FAERS Safety Report 10019966 (Version 1)
Quarter: 2014Q1

REPORT INFORMATION
  Report Type: Spontaneous
  Country: US (occurrence: US)
  Receive Date: 20140318
  Receipt Date: 20140318
  Transmission Date: 20141002
  Serious: No
  Sender: FDA-Public Use
  Company Number: US-009507513-1403USA004360

PATIENT
  Age: 32 Year
  Sex: Female
  Weight: 120.18 kg

DRUGS (2)
  1. IMPLANON [Suspect]
     Indication: CONTRACEPTION
     Dosage: EVERY 3 YEARS, 1 ROD
     Route: 059
     Dates: start: 20110227
  2. GARCINIA [Concomitant]

REACTIONS (3)
  - Haemorrhage urinary tract [Unknown]
  - Incorrect drug administration duration [Unknown]
  - Device dislocation [Unknown]
